FAERS Safety Report 4587299-6 (Version None)
Quarter: 2005Q1

REPORT INFORMATION
  Report Type: 
  Country: None (occurrence: None)
  Receive Date: 20050218
  Receipt Date: 20050126
  Transmission Date: 20050727
  Serious: Yes (Other)
  Sender: FDA-Public Use
  Company Number: JP-BRISTOL-MYERS SQUIBB COMPANY-12858643

PATIENT
  Age: 12 Year
  Sex: Female

DRUGS (6)
  1. IFOMIDE [Suspect]
     Indication: BONE SARCOMA
     Dosage: LAST DOSE: 6-OCT-1999; 2000 MG/M2: 3-7 OCT; 1800 MG/M2:30-OCT TO 2-NOV-00; 1500 MG/M2:1-2 MAR-01
     Route: 041
     Dates: start: 19990405, end: 19991006
  2. ADRIACIN [Suspect]
     Indication: BONE SARCOMA
     Dosage: LAST DOSE ADMINISTERED ON 06-OCT-1999
     Route: 041
     Dates: start: 19990405, end: 19991006
  3. CISPLATIN [Concomitant]
  4. METHOTREXATE [Concomitant]
  5. PARAPLATIN [Concomitant]
     Dosage: 200 MG/M2: 30-OCT TO 2-NOV-00; 125 MG/M2: 1-MAR TO 2 MAR-01
     Dates: start: 20001030, end: 20010302
  6. VEPESID [Concomitant]
     Dosage: 100 MG/M2: 30-OCT TO 2-NOV-00; 80 MG/M2: 1-MAR TO 2 MAR-01
     Dates: start: 20001030, end: 20010302

REACTIONS (2)
  - ENCEPHALOPATHY [None]
  - URINARY INCONTINENCE [None]
